FAERS Safety Report 18780446 (Version 2)
Quarter: 2021Q1

REPORT INFORMATION
  Report Type: Spontaneous
  Country: DE (occurrence: DE)
  Receive Date: 20210125
  Receipt Date: 20210125
  Transmission Date: 20210419
  Serious: Yes (Other)
  Sender: FDA-Public Use
  Company Number: DE-PFIZER INC-2021044043

PATIENT
  Age: 71 Year
  Sex: Female

DRUGS (1)
  1. TREVILOR RETARD [Suspect]
     Active Substance: VENLAFAXINE HYDROCHLORIDE
     Dosage: 37.5 MG, DAILY
     Dates: start: 2007

REACTIONS (2)
  - Blood pressure fluctuation [Unknown]
  - Arrhythmia [Unknown]
